FAERS Safety Report 5689121-3 (Version None)
Quarter: 2008Q1

REPORT INFORMATION
  Report Type: 
  Country: None (occurrence: None)
  Receive Date: 20080331
  Receipt Date: 19840626
  Transmission Date: 20080703
  Serious: Yes (Death)
  Sender: FDA-Public Use
  Company Number: US-ROCHE-840201107001

PATIENT

DRUGS (2)
  1. VALIUM [Suspect]
     Indication: SEDATION
     Route: 030
     Dates: start: 19840601, end: 19840601
  2. VALIUM [Suspect]
     Route: 042
     Dates: start: 19840601, end: 19840601

REACTIONS (1)
  - DEATH [None]
